FAERS Safety Report 12304616 (Version 1)
Quarter: 2016Q2

REPORT INFORMATION
  Report Type: Report from Study
  Country: IN (occurrence: IN)
  Receive Date: 20160426
  Receipt Date: 20160426
  Transmission Date: 20160815
  Serious: Yes (Hospitalization)
  Sender: FDA-Public Use
  Company Number: PHHY2016IN042239

PATIENT
  Age: 69 Year
  Sex: Female
  Weight: 51 kg

DRUGS (7)
  1. THYRONORM [Concomitant]
     Active Substance: LEVOTHYROXINE
     Dosage: 50 MG, QD (FRIDAY TO SUNDAY) (4 TO 5 MONTHS AGO)
     Route: 048
  2. THYRONORM [Concomitant]
     Active Substance: LEVOTHYROXINE
     Indication: THYROID DISORDER
     Dosage: 100 MG, QD (MONDAY TO THURSDAY) (3 YEARS)
     Route: 048
  3. HYCIBEX [Concomitant]
     Indication: HYPOVITAMINOSIS
     Dosage: UNK UNK, QD
     Route: 048
  4. OLMETEC HCT [Concomitant]
     Active Substance: HYDROCHLOROTHIAZIDE\OLMESARTAN MEDOXOMIL
     Indication: BLOOD PRESSURE ABNORMAL
     Dosage: SINCE 10 YEARS
     Route: 065
  5. ACLASTA [Suspect]
     Active Substance: ZOLEDRONIC ACID
     Indication: OSTEOPOROSIS
     Dosage: 5 MG, UNK
     Route: 042
     Dates: start: 20120329
  6. GEMCAL [Concomitant]
     Active Substance: CALCIUM
     Indication: BLOOD CALCIUM DECREASED
     Dosage: UNK UNK, BID (4 TO 5 YEARS)
     Route: 048
  7. GEMCAL DS [Concomitant]
     Indication: BLOOD CALCIUM DECREASED
     Dosage: UNK UNK, BID (8 MONTHS)
     Route: 048

REACTIONS (2)
  - Blood calcium increased [Recovering/Resolving]
  - Femur fracture [Recovered/Resolved]

NARRATIVE: CASE EVENT DATE: 20150726
